FAERS Safety Report 11666498 (Version 4)
Quarter: 2015Q4

REPORT INFORMATION
  Report Type: Spontaneous
  Country: FR (occurrence: FR)
  Receive Date: 20151027
  Receipt Date: 20151029
  Transmission Date: 20160304
  Serious: Yes (Death)
  Sender: FDA-Public Use
  Company Number: PHHY2015FR137920

PATIENT
  Age: 46 Year
  Sex: Female

DRUGS (1)
  1. CICLOSPORIN [Suspect]
     Active Substance: CYCLOSPORINE
     Indication: TOXIC EPIDERMAL NECROLYSIS
     Dosage: 1.5 MG/KG, Q12H
     Route: 065

REACTIONS (4)
  - Multi-organ failure [Fatal]
  - Product use issue [Unknown]
  - Drug ineffective [Fatal]
  - Condition aggravated [Fatal]
